FAERS Safety Report 15407247 (Version 2)
Quarter: 2019Q2

REPORT INFORMATION
  Report Type: Spontaneous
  Country: US (occurrence: US)
  Receive Date: 20180920
  Receipt Date: 20190529
  Transmission Date: 20190711
  Serious: No
  Sender: FDA-Public Use
  Company Number: US-SA-2018SA261716

PATIENT
  Age: 43 Year
  Sex: Female
  Weight: 68.03 kg

DRUGS (1)
  1. DUPIXENT [Suspect]
     Active Substance: DUPILUMAB
     Indication: DERMATITIS ATOPIC
     Dosage: 300 MG, QOW
     Route: 058
     Dates: start: 20180205

REACTIONS (2)
  - Injury [Unknown]
  - Platelet count increased [Unknown]

NARRATIVE: CASE EVENT DATE: 20180912
